FAERS Safety Report 6960404-X (Version None)
Quarter: 2010Q3

REPORT INFORMATION
  Report Type: 
  Country: None (occurrence: None)
  Receive Date: 20100901
  Receipt Date: 20100818
  Transmission Date: 20110219
  Serious: Yes (Disabling, Other)
  Sender: FDA-Public Use
  Company Number: DE-TEVA-245800ISR

PATIENT
  Sex: Female
  Weight: 60 kg

DRUGS (28)
  1. METHOTREXATE [Suspect]
     Indication: METASTASES TO CENTRAL NERVOUS SYSTEM
     Route: 042
     Dates: start: 20090404, end: 20090430
  2. ETOPOSIDE [Suspect]
     Indication: METASTASES TO CENTRAL NERVOUS SYSTEM
     Dates: start: 20090624, end: 20090626
  3. IFOSFAMIDE [Suspect]
     Indication: METASTASES TO CENTRAL NERVOUS SYSTEM
     Route: 042
     Dates: start: 20090406, end: 20090504
  4. DEXAMETHASONE [Suspect]
     Indication: METASTASES TO CENTRAL NERVOUS SYSTEM
     Route: 048
     Dates: start: 20090409, end: 20090627
  5. CYTARABINE [Suspect]
     Indication: METASTASES TO CENTRAL NERVOUS SYSTEM
     Dates: start: 20090523, end: 20090524
  6. CARMUSTINE [Suspect]
     Indication: METASTASES TO CENTRAL NERVOUS SYSTEM
     Dates: start: 20090624, end: 20090624
  7. THIOTEPA [Suspect]
     Indication: METASTASES TO CENTRAL NERVOUS SYSTEM
     Dates: start: 20090524, end: 20090626
  8. CYTARABINE [Suspect]
     Dates: start: 20090409, end: 20090525
  9. SODIUM BICARBONATE [Concomitant]
  10. POTASSIUM CHLORIDE [Concomitant]
  11. SODIUM CHLORIDE [Concomitant]
  12. MESNA [Concomitant]
  13. METOCLOPRAMIDE HYDROCHLORIDE [Concomitant]
  14. ONDANSETRON [Concomitant]
  15. METOCLOPRAMIDE HYDROCHLORIDE [Concomitant]
  16. PANTOPRAZOLE SODIUM [Concomitant]
  17. LEVOFLOXACIN [Concomitant]
  18. AMPHOTERICIN B [Concomitant]
  19. POVIDONE IODINE [Concomitant]
  20. POTASSIUM [Concomitant]
  21. DEXAMETHASONE [Concomitant]
  22. NEUPOGEN [Concomitant]
  23. METOCLOPRAMIDE [Concomitant]
  24. HEPARIN [Concomitant]
  25. PREDNISOLONE [Concomitant]
  26. CLEMASTINE FUMARATE [Concomitant]
  27. RANITIDINE HYDROCHLORIDE [Concomitant]
  28. METRONIDAZOLE [Concomitant]

REACTIONS (4)
  - FAECAL INCONTINENCE [None]
  - MUSCULAR WEAKNESS [None]
  - POLYNEUROPATHY [None]
  - URINARY INCONTINENCE [None]
